FAERS Safety Report 8769129 (Version 1)
Quarter: 2012Q4

REPORT INFORMATION
  Report Type: 
  Country: RU (occurrence: RU)
  Receive Date: 20120904
  Receipt Date: 20120904
  Transmission Date: 20130627
  Serious: Yes (Other)
  Sender: FDA-Public Use
  Company Number: RU-ELI_LILLY_AND_COMPANY-RU201208007353

PATIENT
  Age: 64 Year
  Sex: Female

DRUGS (1)
  1. HUMULIN REGULAR [Suspect]
     Dosage: UNK UNK, unknown

REACTIONS (3)
  - Loss of consciousness [Recovering/Resolving]
  - Dyspnoea [Recovering/Resolving]
  - Dizziness [Recovering/Resolving]
